FAERS Safety Report 4507063-3 (Version None)
Quarter: 2004Q4

REPORT INFORMATION
  Report Type: 
  Country: None (occurrence: None)
  Receive Date: 20041122
  Receipt Date: 20041007
  Transmission Date: 20050328
  Serious: Yes (Hospitalization)
  Sender: FDA-Public Use
  Company Number: DE-MERCK-0410DEU00233

PATIENT
  Age: 74 Year
  Sex: Female
  Weight: 63 kg

DRUGS (5)
  1. VIOXX [Suspect]
     Indication: RHEUMATOID ARTHRITIS
     Route: 048
     Dates: start: 20020101, end: 20031101
  2. VIOXX [Suspect]
     Indication: OSTEOARTHRITIS
     Route: 048
     Dates: start: 20020101, end: 20031101
  3. CHLORAMBUCIL [Concomitant]
     Route: 065
     Dates: start: 20031101
  4. ALLOPURINOL [Concomitant]
     Route: 065
     Dates: start: 20031101
  5. VALDECOXIB [Concomitant]
     Route: 065
     Dates: start: 20031101

REACTIONS (3)
  - BLOOD PRESSURE INCREASED [None]
  - CEREBROVASCULAR ACCIDENT [None]
  - REVERSIBLE ISCHAEMIC NEUROLOGICAL DEFICIT [None]
